FAERS Safety Report 25220473 (Version 1)
Quarter: 2025Q2

REPORT INFORMATION
  Report Type: Report from Study
  Country: CA (occurrence: CA)
  Receive Date: 20250421
  Receipt Date: 20250421
  Transmission Date: 20250717
  Serious: Yes (Other)
  Sender: MYLAN
  Company Number: CA-MYLANLABS-2025M1013532

PATIENT
  Age: 44 Year
  Sex: Male
  Weight: 83 kg

DRUGS (2)
  1. CLOZAPINE [Suspect]
     Active Substance: CLOZAPINE
     Indication: Depression suicidal
  2. CLOZAPINE [Suspect]
     Active Substance: CLOZAPINE
     Indication: Insomnia
     Dosage: 50 MILLIGRAM, QD (QHS, ONCE AT NIGHT)
     Dates: start: 202502, end: 20250209

REACTIONS (3)
  - Myocarditis [Recovered/Resolved]
  - Eosinophilia [Unknown]
  - Off label use [Unknown]

NARRATIVE: CASE EVENT DATE: 20250101
